FAERS Safety Report 19104778 (Version 1)
Quarter: 2021Q2

REPORT INFORMATION
  Report Type: Spontaneous
  Country: IN (occurrence: IN)
  Receive Date: 20210408
  Receipt Date: 20210408
  Transmission Date: 20210717
  Serious: Yes (Hospitalization)
  Sender: FDA-Public Use
  Company Number: IN-GRANULES-IN-2021GRALIT00235

PATIENT
  Age: 58 Year
  Sex: Male

DRUGS (2)
  1. NAPROXEN. [Suspect]
     Active Substance: NAPROXEN
     Indication: SPINAL PAIN
     Route: 065
  2. VITAMIN D NOS [Interacting]
     Active Substance: VITAMIN D NOS
     Indication: PSORIASIS
     Route: 065

REACTIONS (1)
  - Psoriasis [Recovering/Resolving]
